FAERS Safety Report 12816345 (Version 1)
Quarter: 2016Q4

REPORT INFORMATION
  Report Type: Spontaneous
  Country: AU (occurrence: AU)
  Receive Date: 20161006
  Receipt Date: 20161006
  Transmission Date: 20170207
  Serious: No
  Sender: FDA-Public Use
  Company Number: AU-NOVEN PHARMACEUTICALS, INC.-AU2016001224

PATIENT

DRUGS (1)
  1. ESTRADIOL/NORETHISTERONE ACETATE [Suspect]
     Active Substance: ESTRADIOL\NORETHINDRONE ACETATE
     Indication: PRODUCT USED FOR UNKNOWN INDICATION
     Dosage: 1 DF (50 UNIT ESTRADIOL AND 140 UNIT NORETHISTERONE), 2/WK
     Route: 062

REACTIONS (4)
  - Application site rash [Unknown]
  - Application site dermatitis [Unknown]
  - Product adhesion issue [Unknown]
  - Application site erythema [Unknown]
